FAERS Safety Report 6790518-9 (Version None)
Quarter: 2010Q2

REPORT INFORMATION
  Report Type: 
  Country: None (occurrence: None)
  Receive Date: 20100624
  Receipt Date: 20100614
  Transmission Date: 20101027
  Serious: Yes (Other)
  Sender: FDA-Public Use
  Company Number: JP-PFIZER INC-2007012655

PATIENT
  Age: 37 Year
  Sex: Female

DRUGS (5)
  1. DOXORUBICIN HCL [Suspect]
     Indication: BREAST CANCER METASTATIC
     Dosage: 50 MG/M2, EVERY 3 WEEKS
     Dates: start: 20030201
  2. TAXOL [Suspect]
     Indication: BREAST CANCER METASTATIC
     Dosage: 80 MG/M2, UNK
     Dates: start: 20040901, end: 20041201
  3. TAXOTERE [Suspect]
     Indication: BREAST CANCER METASTATIC
     Dosage: 60 MG/M2, EVERY 3 WEEKS
     Dates: start: 20030201
  4. TAXOTERE [Suspect]
     Dosage: 75 MG/M2, UNK
     Dates: start: 20030801, end: 20040801
  5. TRASTUZUMAB [Suspect]
     Indication: BREAST CANCER METASTATIC
     Dosage: 2 MG/KG
     Dates: start: 20030801, end: 20040801

REACTIONS (1)
  - SCLERODERMA [None]
